FAERS Safety Report 4641730-6 (Version None)
Quarter: 2005Q2

REPORT INFORMATION
  Report Type: 
  Country: None (occurrence: None)
  Receive Date: 20050420
  Receipt Date: 20050405
  Transmission Date: 20051028
  Serious: Yes (Hospitalization)
  Sender: FDA-Public Use
  Company Number: 2005BI007269

PATIENT
  Age: 59 Year
  Sex: Male
  Weight: 115.2136 kg

DRUGS (12)
  1. AVONEX [Suspect]
     Indication: MULTIPLE SCLEROSIS
     Dosage: 30 UG;QW;IM
     Route: 030
     Dates: start: 19970101, end: 20000101
  2. NATALIZUMAB [Suspect]
     Indication: MULTIPLE SCLEROSIS
     Dosage: 300 MG;QW;IV
     Route: 042
     Dates: start: 20041201, end: 20041201
  3. VICODIN [Concomitant]
  4. LOPRESSOR [Concomitant]
  5. EFFEXOR [Concomitant]
  6. QUININE SULFATE [Concomitant]
  7. PROTONIX [Concomitant]
  8. PLAVIX [Concomitant]
  9. NEURONTIN [Concomitant]
  10. BACLOFEN [Concomitant]
  11. TUMS [Concomitant]
  12. NIASPAN [Concomitant]

REACTIONS (4)
  - CORONARY ARTERY OCCLUSION [None]
  - DYSPNOEA [None]
  - FLUID RETENTION [None]
  - MYOCARDIAL INFARCTION [None]
